FAERS Safety Report 17931495 (Version 1)
Quarter: 2020Q2

REPORT INFORMATION
  Report Type: Spontaneous
  Country: FR (occurrence: FR)
  Receive Date: 20200623
  Receipt Date: 20200623
  Transmission Date: 20200714
  Serious: Yes (Other)
  Sender: FDA-Public Use
  Company Number: FR-MYLANLABS-2020M1057207

PATIENT
  Age: 57 Year
  Sex: Male
  Weight: 90 kg

DRUGS (1)
  1. DESLORATADINE MYLAN 5 MG, COMPRIM? PELLICUL? [Suspect]
     Active Substance: DESLORATADINE
     Indication: CONJUNCTIVITIS
     Dosage: 1 DOSAGE FORM, QD
     Route: 048
     Dates: start: 20200313

REACTIONS (4)
  - Hallucination [Recovered/Resolved]
  - Vertigo [Recovered/Resolved]
  - Vomiting [Recovered/Resolved]
  - Abdominal pain lower [Recovered/Resolved]

NARRATIVE: CASE EVENT DATE: 20200313
